FAERS Safety Report 9693963 (Version 2)
Quarter: 2013Q4

REPORT INFORMATION
  Report Type: Spontaneous
  Country: AU (occurrence: AU)
  Receive Date: 20131118
  Receipt Date: 20131118
  Transmission Date: 20140711
  Serious: Yes (Other)
  Sender: FDA-Public Use
  Company Number: AU-ABBVIE-04P-008-0280804-00

PATIENT
  Sex: Male

DRUGS (2)
  1. VALPROATE SODIUM [Suspect]
     Indication: PRODUCT USED FOR UNKNOWN INDICATION
     Route: 048
  2. LAMOTRIGINE [Suspect]
     Indication: PRODUCT USED FOR UNKNOWN INDICATION
     Route: 048

REACTIONS (18)
  - Lymphadenopathy [Unknown]
  - Laryngeal pain [Unknown]
  - Hepatosplenomegaly [Unknown]
  - Hyponatraemia [Unknown]
  - Coagulation test abnormal [Unknown]
  - Musculoskeletal stiffness [Unknown]
  - Vomiting [Unknown]
  - Ocular hyperaemia [Unknown]
  - Oedema peripheral [Unknown]
  - Lip swelling [Unknown]
  - Rash [Unknown]
  - Pyrexia [Unknown]
  - Cough [Recovered/Resolved]
  - Diarrhoea [Unknown]
  - Headache [Unknown]
  - Thrombocytopenia [Unknown]
  - Liver function test abnormal [Unknown]
  - Eosinophilia [Unknown]
